FAERS Safety Report 24771327 (Version 1)
Quarter: 2024Q4

REPORT INFORMATION
  Report Type: Spontaneous
  Country: US (occurrence: None)
  Receive Date: 20241224
  Receipt Date: 20241224
  Transmission Date: 20250114
  Serious: Yes (Death)
  Sender: Public
  Company Number: None

PATIENT
  Age: 52 Year
  Sex: Male

DRUGS (5)
  1. SOFOSBUVIR\VELPATASVIR [Suspect]
     Active Substance: SOFOSBUVIR\VELPATASVIR
     Indication: Hepatitis C
     Dosage: 400/100 MG DAILY ORAL
     Route: 048
     Dates: start: 20241001, end: 20241217
  2. ASPIRIN [Concomitant]
     Active Substance: ASPIRIN
  3. Advil 200mg [Concomitant]
  4. CLONIDINE [Concomitant]
     Active Substance: CLONIDINE
  5. METOPROLOL TARTRATE [Concomitant]
     Active Substance: METOPROLOL TARTRATE

REACTIONS (1)
  - Death [None]

NARRATIVE: CASE EVENT DATE: 20241217
